FAERS Safety Report 15961751 (Version 1)
Quarter: 2019Q1

REPORT INFORMATION
  Report Type: Report from Study
  Country: US (occurrence: US)
  Receive Date: 20190214
  Receipt Date: 20190214
  Transmission Date: 20190417
  Serious: Yes (Hospitalization, Other)
  Sender: FDA-Public Use
  Company Number: US-GILEAD-2019-0390752

PATIENT
  Age: 81 Year
  Sex: Female

DRUGS (4)
  1. AMBRISENTAN [Suspect]
     Active Substance: AMBRISENTAN
     Indication: TOXICITY TO VARIOUS AGENTS
  2. AMBRISENTAN [Suspect]
     Active Substance: AMBRISENTAN
     Indication: PULMONARY HYPERTENSION
     Dosage: 10 MG, QD
     Route: 048
     Dates: start: 2012
  3. AMBRISENTAN [Suspect]
     Active Substance: AMBRISENTAN
     Indication: CONNECTIVE TISSUE DISORDER
  4. AMBRISENTAN [Suspect]
     Active Substance: AMBRISENTAN
     Indication: HEART DISEASE CONGENITAL

REACTIONS (3)
  - Pneumonia [Recovered/Resolved]
  - Asthma [Recovered/Resolved]
  - Respiratory failure [Recovered/Resolved]
